FAERS Safety Report 7439824-5 (Version None)
Quarter: 2011Q2

REPORT INFORMATION
  Report Type: 
  Country: None (occurrence: None)
  Receive Date: 20110427
  Receipt Date: 20110414
  Transmission Date: 20111010
  Serious: Yes (Death, Other)
  Sender: FDA-Public Use
  Company Number: CA-PURDUE-CAN-2010-0001567

PATIENT
  Age: 45 Year
  Sex: Male

DRUGS (5)
  1. OXYCONTIN [Suspect]
     Indication: PAIN
     Dosage: 8 TABLET, DAILY
     Route: 045
  2. OXYCONTIN [Suspect]
     Indication: PRODUCT USED FOR UNKNOWN INDICATION
  3. COCAINE [Suspect]
     Indication: PRODUCT USED FOR UNKNOWN INDICATION
     Dosage: UNK
     Route: 045
     Dates: start: 19860101
  4. ALCOHOL [Suspect]
     Indication: PRODUCT USED FOR UNKNOWN INDICATION
     Dosage: UNK
     Route: 048
     Dates: start: 19790101
  5. PERCOCET [Suspect]
     Indication: PAIN
     Route: 048

REACTIONS (10)
  - MYOCARDIAL INFARCTION [None]
  - EUPHORIC MOOD [None]
  - CARDIOMEGALY [None]
  - DRUG DEPENDENCE [None]
  - ANGINA PECTORIS [None]
  - NAUSEA [None]
  - CYANOSIS [None]
  - CARDIAC ARREST [None]
  - SUBSTANCE ABUSE [None]
  - CORONARY ARTERY OCCLUSION [None]
